FAERS Safety Report 5053390-3 (Version None)
Quarter: 2006Q3

REPORT INFORMATION
  Report Type: 
  Country: None (occurrence: None)
  Receive Date: 20060718
  Receipt Date: 20060706
  Transmission Date: 20061208
  Serious: Yes (Death, Hospitalization, Other)
  Sender: FDA-Public Use
  Company Number: PHEH2006US08730

PATIENT
  Age: 85 Year
  Sex: Male
  Weight: 98.412 kg

DRUGS (11)
  1. MULTIVITAMIN [Concomitant]
  2. CYCLOSPORINE [Concomitant]
     Dosage: 50 MG, QD
     Route: 048
     Dates: start: 20051121
  3. EXJADE [Suspect]
     Indication: HAEMOSIDEROSIS
     Dosage: 2000 MG, QD
     Route: 048
     Dates: start: 20060428
  4. ARANESP [Concomitant]
     Indication: ANAEMIA
     Dosage: 400 MG, QW
     Route: 058
     Dates: start: 20060301
  5. LEVAQUIN [Concomitant]
     Dosage: 500 MG, QD
     Route: 048
     Dates: end: 20060704
  6. ACETAMINOPHEN [Concomitant]
     Indication: HEADACHE
     Dosage: 325 MG, PRN
     Route: 048
  7. NORVASC [Concomitant]
     Indication: HYPERTENSION
     Dosage: 5 MG, QD
     Route: 048
     Dates: start: 19100211
  8. LISINOPRIL [Concomitant]
     Indication: HYPERTENSION
  9. PREVACID [Concomitant]
     Dosage: 30 MG, QD
     Route: 048
     Dates: start: 20051027
  10. TERAZOSIN HCL [Concomitant]
     Indication: BENIGN PROSTATIC HYPERPLASIA
     Dosage: 5 MG, QD
     Route: 048
     Dates: start: 20051027
  11. SODIUM BICARBONATE [Concomitant]
     Dosage: 650 MG, QD
     Route: 048

REACTIONS (13)
  - ATELECTASIS [None]
  - BLINDNESS UNILATERAL [None]
  - CEREBRAL INFARCTION [None]
  - CEREBRAL ISCHAEMIA [None]
  - CEREBROVASCULAR ACCIDENT [None]
  - CONFUSIONAL STATE [None]
  - DEEP VEIN THROMBOSIS [None]
  - HEADACHE [None]
  - NECK PAIN [None]
  - NUCLEAR MAGNETIC RESONANCE IMAGING BRAIN ABNORMAL [None]
  - PULMONARY EMBOLISM [None]
  - RESTLESSNESS [None]
  - TRANSIENT ISCHAEMIC ATTACK [None]
